FAERS Safety Report 17368222 (Version 4)
Quarter: 2021Q4

REPORT INFORMATION
  Report Type: Report from Study
  Country: US (occurrence: US)
  Receive Date: 20200204
  Receipt Date: 20211108
  Transmission Date: 20220303
  Serious: No
  Sender: FDA-Public Use
  Company Number: US-TAKEDA-2020TUS005915

PATIENT
  Sex: Female

DRUGS (1)
  1. VORTIOXETINE [Suspect]
     Active Substance: VORTIOXETINE
     Indication: Major depression
     Dosage: 20 MILLIGRAM, QD
     Route: 048
     Dates: start: 201904

REACTIONS (7)
  - Abdominal discomfort [Unknown]
  - Drug ineffective [Unknown]
  - Feeling abnormal [Unknown]
  - Depressed mood [Not Recovered/Not Resolved]
  - Weight increased [Unknown]
  - Libido decreased [Unknown]
  - Nausea [Unknown]
